FAERS Safety Report 15276581 (Version 2)
Quarter: 2018Q3

REPORT INFORMATION
  Report Type: Report from Study
  Country: None (occurrence: US)
  Receive Date: 20180814
  Receipt Date: 20180821
  Transmission Date: 20181010
  Serious: Yes (Other)
  Sender: FDA-Public Use
  Company Number: US-ABBVIE-18S-163-2447193-00

PATIENT
  Age: 77 Year
  Sex: Male

DRUGS (1)
  1. CREON [Suspect]
     Active Substance: PANCRELIPASE AMYLASE\PANCRELIPASE LIPASE\PANCRELIPASE PROTEASE
     Indication: PRODUCT USED FOR UNKNOWN INDICATION
     Dosage: 2 CAPSULES, 3 TIMES A DAY.
     Route: 048

REACTIONS (6)
  - Chest pain [Unknown]
  - Cardiac disorder [Unknown]
  - Dyspnoea [Unknown]
  - Colon cancer [Unknown]
  - Implantable defibrillator insertion [Unknown]
  - Emphysema [Unknown]

NARRATIVE: CASE EVENT DATE: 201805
